FAERS Safety Report 5316994-6 (Version None)
Quarter: 2007Q2

REPORT INFORMATION
  Report Type: 
  Country: None (occurrence: None)
  Receive Date: 20070504
  Receipt Date: 20070427
  Transmission Date: 20071010
  Serious: Yes (Other)
  Sender: FDA-Public Use
  Company Number: GB-GLAXOSMITHKLINE-B0469203A

PATIENT
  Weight: 82.7 kg

DRUGS (13)
  1. NICOTINE [Suspect]
     Dosage: 21MG PER DAY
     Route: 062
  2. ASPIRIN [Concomitant]
     Dosage: 75MG PER DAY
  3. BETAMETHASONE [Concomitant]
     Route: 055
  4. DIAZEPAM [Concomitant]
     Dosage: 2MG TWICE PER DAY
  5. NICORANDIL [Concomitant]
     Dosage: 20MG PER DAY
  6. OVESTIN [Concomitant]
  7. PEPPERMINT OIL [Concomitant]
  8. SALBUTAMOL [Concomitant]
     Route: 055
  9. TERBINAFINE [Concomitant]
  10. TRAZODONE HCL [Concomitant]
     Dosage: 150MG PER DAY
  11. VESICARE [Concomitant]
     Dosage: 5MG PER DAY
  12. MOVICOL [Concomitant]
  13. SIMVASTATIN [Concomitant]
     Dosage: 40MG PER DAY

REACTIONS (3)
  - MUSCLE RIGIDITY [None]
  - PARALYSIS [None]
  - SLEEP PARALYSIS [None]
